FAERS Safety Report 7160412-2 (Version None)
Quarter: 2010Q4

REPORT INFORMATION
  Report Type: 
  Country: None (occurrence: None)
  Receive Date: 20101214
  Receipt Date: 20091209
  Transmission Date: 20110411
  Serious: No
  Sender: FDA-Public Use
  Company Number: US-AMGEN-KDL379329

PATIENT

DRUGS (13)
  1. ENBREL [Suspect]
     Indication: PRODUCT USED FOR UNKNOWN INDICATION
     Dosage: 25 MG, 2 TIMES/WK
     Route: 058
  2. ALENDRONATE SODIUM [Concomitant]
     Dosage: 70 MG, UNK
  3. METHOTREXATE [Concomitant]
     Dosage: 2.5 MG, UNK
  4. TRAMADOL HYDROCHLORIDE [Concomitant]
     Dosage: 50 MG, UNK
  5. FEXOFENADINE HCL [Concomitant]
     Dosage: 180 MG, UNK
  6. FOLIC ACID [Concomitant]
     Dosage: 1 MG, UNK
  7. FLUTICASONE PROPIONATE [Concomitant]
  8. MIRALAX [Concomitant]
  9. CALCIUM WITH VITAMIN D [Concomitant]
     Dosage: UNK UNK, UNK
  10. ACETAMINOPHEN [Concomitant]
     Dosage: 500 MG, UNK
  11. ACETYLSALICYLIC ACID [Concomitant]
     Dosage: 81 MG, UNK
  12. MYLANTA [Concomitant]
  13. RABEPRAZOLE SODIUM [Concomitant]
     Dosage: 20 MG, UNK

REACTIONS (3)
  - GASTROENTERITIS VIRAL [None]
  - PYREXIA [None]
  - TOOTH FRACTURE [None]
